FAERS Safety Report 4277204-4 (Version None)
Quarter: 2004Q1

REPORT INFORMATION
  Report Type: 
  Country: None (occurrence: None)
  Receive Date: 20040120
  Receipt Date: 20040105
  Transmission Date: 20041129
  Serious: Yes (Hospitalization, Disabling)
  Sender: FDA-Public Use
  Company Number: 2004-DE-00157YA

PATIENT
  Age: 55 Year
  Sex: Male

DRUGS (1)
  1. OMIX (TAMSULOSIN) (NR) (TAMSULOSIN HYDROCHLORIDE) [Suspect]
     Dosage: 0.4 MG TAMSULOSIN ON 09OCT2003 AND 1.2 MG TAMSULOSIN ON 10OCT2003 (NR) PO
     Route: 048
     Dates: start: 20031009, end: 20031010

REACTIONS (3)
  - FISTULA [None]
  - OVERDOSE [None]
  - PRIAPISM [None]
